FAERS Safety Report 9656373 (Version 1)
Quarter: 2013Q4

REPORT INFORMATION
  Report Type: Spontaneous
  Country: US (occurrence: US)
  Receive Date: 20131030
  Receipt Date: 20131030
  Transmission Date: 20140711
  Serious: Yes (Other)
  Sender: FDA-Public Use
  Company Number: US-JNJCP-30000184674

PATIENT
  Sex: Female

DRUGS (2)
  1. NEUTROGENA SPECTRUM ADVANCED SUNBLOCK LOTION SPF 100 WITH HELIOPLEX [Suspect]
     Indication: PROPHYLAXIS
     Dosage: DIME SIZED AMOUNT, ONCE TO TWICE DAILY
     Route: 061
  2. UNKNOWN [Concomitant]
     Indication: HYPERTENSION
     Dosage: ONCE A DAY, SINCE TEN YEARS

REACTIONS (3)
  - Skin cancer [Unknown]
  - Skin disorder [Unknown]
  - Expired drug administered [Unknown]
